FAERS Safety Report 9122122 (Version 1)
Quarter: 2013Q1

REPORT INFORMATION
  Report Type: Spontaneous
  Country: US (occurrence: None)
  Receive Date: 20130125
  Receipt Date: 20130125
  Transmission Date: 20140127
  Serious: Yes (Other)
  Sender: FDA-Public Use
  Company Number: 2012US-004417

PATIENT
  Age: 78 Year
  Sex: Female
  Weight: 58.6 kg

DRUGS (5)
  1. OMONTYS (PEGINESATIDE) SOLUTION FOR INJECTION [Suspect]
     Indication: NEPHROGENIC ANAEMIA
     Dates: start: 20120925, end: 20120925
  2. HECTOROL (DOXERCALCIFEROL) [Concomitant]
  3. VENOFER [Concomitant]
  4. HEPARIN (HERARIN) [Concomitant]
  5. CATHFLO ACTIVASE (ALTEPLASE) [Concomitant]

REACTIONS (11)
  - Hypersensitivity [None]
  - Asthenia [None]
  - Diplopia [None]
  - Nausea [None]
  - Pruritus generalised [None]
  - Rash macular [None]
  - Oedema peripheral [None]
  - Pulse pressure decreased [None]
  - Dizziness [None]
  - Rash generalised [None]
  - Hypotension [None]
